FAERS Safety Report 5908125-6 (Version None)
Quarter: 2008Q4

REPORT INFORMATION
  Report Type: 
  Country: None (occurrence: None)
  Receive Date: 20081003
  Receipt Date: 20080922
  Transmission Date: 20090506
  Serious: Yes (Hospitalization, Other)
  Sender: FDA-Public Use
  Company Number: US-PFIZER INC-2008081153

PATIENT
  Sex: Female
  Weight: 68 kg

DRUGS (13)
  1. CHANTIX [Suspect]
     Indication: SMOKING CESSATION THERAPY
     Dates: start: 20080801, end: 20080901
  2. ALPRAZOLAM [Interacting]
     Indication: ANXIETY
     Dosage: DAILY DOSE:4MG
  3. ALPRAZOLAM [Interacting]
     Indication: MIGRAINE
  4. SPIRIVA [Concomitant]
  5. ADVAIR DISKUS 100/50 [Concomitant]
  6. ALBUTEROL [Concomitant]
  7. CLARITIN [Concomitant]
  8. LEVOTHYROXINE SODIUM [Concomitant]
  9. LOTREL [Concomitant]
  10. OMEPRAZOLE [Concomitant]
  11. ACETYLSALICYLIC ACID SRT [Concomitant]
  12. TIZANIDINE HCL [Concomitant]
  13. PLAVIX [Concomitant]

REACTIONS (5)
  - ABNORMAL BEHAVIOUR [None]
  - ANXIETY [None]
  - DEPRESSION [None]
  - DRUG INTERACTION [None]
  - MEMORY IMPAIRMENT [None]
